FAERS Safety Report 8200421-5 (Version None)
Quarter: 2012Q1

REPORT INFORMATION
  Report Type: 
  Country: None (occurrence: None)
  Receive Date: 20120306
  Receipt Date: 20120221
  Transmission Date: 20120608
  Serious: Yes (Death, Other)
  Sender: FDA-Public Use
  Company Number: PNIS20120012

PATIENT
  Age: 41 Year
  Sex: Male

DRUGS (3)
  1. INFLIXIMAB (INFLIXIMAB) [Suspect]
     Indication: CROHN'S DISEASE
  2. PREDNISOLONE [Suspect]
     Indication: CROHN'S DISEASE
     Dosage: 15 MG
  3. AZATHIOPRINE [Suspect]
     Indication: CROHN'S DISEASE
     Dosage: 2.5 MG/KG

REACTIONS (4)
  - RENAL FAILURE ACUTE [None]
  - LEIOMYOSARCOMA METASTATIC [None]
  - NEUTROPENIC SEPSIS [None]
  - DRUG INEFFECTIVE [None]
